FAERS Safety Report 4293662-3 (Version None)
Quarter: 2004Q1

REPORT INFORMATION
  Report Type: 
  Country: None (occurrence: None)
  Receive Date: 20040212
  Receipt Date: 19950523
  Transmission Date: 20041129
  Serious: Yes (Hospitalization, Disabling)
  Sender: FDA-Public Use
  Company Number: USA/95/01215/PLO

PATIENT
  Age: 32 Year
  Sex: Female

DRUGS (1)
  1. PARLODEL [Suspect]
     Indication: SUPPRESSED LACTATION
     Dosage: UNSPECIFIED
     Route: 048

REACTIONS (11)
  - CEREBROVASCULAR ACCIDENT [None]
  - CONFUSIONAL STATE [None]
  - DISORIENTATION [None]
  - GERSTMANN'S SYNDROME [None]
  - HAEMORRHAGE INTRACRANIAL [None]
  - HEADACHE [None]
  - HYPERTENSION [None]
  - MENTAL IMPAIRMENT [None]
  - PAIN [None]
  - POLYTRAUMATISM [None]
  - VISION BLURRED [None]
